FAERS Safety Report 13894635 (Version 5)
Quarter: 2018Q2

REPORT INFORMATION
  Report Type: Report from Study
  Country: NO (occurrence: NO)
  Receive Date: 20170823
  Receipt Date: 20180430
  Transmission Date: 20180711
  Serious: Yes (Hospitalization)
  Sender: FDA-Public Use
  Company Number: NO-ROCHE-1978046

PATIENT
  Age: 40 Year
  Sex: Female
  Weight: 70 kg

DRUGS (13)
  1. AFIPRAN [Concomitant]
     Active Substance: METOCLOPRAMIDE HYDROCHLORIDE
     Dosage: TO PREVENT NAUSEA RELATED TO CHEMOTHERAPY
     Route: 065
     Dates: start: 20170329
  2. KLEXANE [Concomitant]
     Active Substance: ENOXAPARIN
     Dosage: PREVENT EMBOLI
     Route: 065
     Dates: start: 20170501
  3. RINEXIN [Concomitant]
     Active Substance: PHENYLPROPANOLAMINE
     Indication: VIRAL UPPER RESPIRATORY TRACT INFECTION
     Route: 065
     Dates: start: 20171030, end: 20171114
  4. PARACET (NORWAY) [Concomitant]
     Indication: PAIN
     Route: 065
     Dates: start: 20170330
  5. PARACET (NORWAY) [Concomitant]
     Indication: PYREXIA
  6. AKYNZEO [Concomitant]
     Active Substance: NETUPITANT\PALONOSETRON HYDROCHLORIDE
     Dosage: TO PREVENT NAUSEA
     Route: 065
     Dates: start: 20170518
  7. DESLORATADIN [Concomitant]
     Active Substance: DESLORATADINE
     Indication: RASH
     Route: 065
     Dates: start: 20170623
  8. ATEZOLIZUMAB. [Suspect]
     Active Substance: ATEZOLIZUMAB
     Indication: BREAST CANCER METASTATIC
     Dosage: MOST RECENT DOSE: 26/JUL/2017, 840 MG
     Route: 042
     Dates: start: 20170329
  9. ONDANSETRON [Concomitant]
     Active Substance: ONDANSETRON
     Dosage: TO PREVENT NAUSEA RELATED TO CHEMOTHERAPY
     Route: 065
     Dates: start: 20170329
  10. PARACET (NORWAY) [Concomitant]
     Indication: HEADACHE
  11. DUPHALAC (NORWAY) [Concomitant]
     Indication: CONSTIPATION
     Route: 065
     Dates: start: 20170412
  12. NAB-PACLITAXEL [Suspect]
     Active Substance: PACLITAXEL
     Indication: BREAST CANCER METASTATIC
     Dosage: MOST RECENT DOSE (100 MG/M2, WEEKLY): 26/JUL/2017
     Route: 042
     Dates: start: 20170329
  13. SOLVIPECT [Concomitant]
     Indication: VIRAL UPPER RESPIRATORY TRACT INFECTION
     Route: 065
     Dates: start: 20171102, end: 20171114

REACTIONS (2)
  - Hypothyroidism [Recovered/Resolved]
  - Cortisol decreased [Recovered/Resolved]

NARRATIVE: CASE EVENT DATE: 20170807
